FAERS Safety Report 8725496 (Version 3)
Quarter: 2012Q4

REPORT INFORMATION
  Report Type: 
  Country: JP (occurrence: JP)
  Receive Date: 20120815
  Receipt Date: 20120914
  Transmission Date: 20130627
  Serious: Yes (Life-Threatening, Hospitalization, Other)
  Sender: FDA-Public Use
  Company Number: JP-ELI_LILLY_AND_COMPANY-JP201208002887

PATIENT
  Age: 69 None
  Sex: Female
  Weight: 82 kg

DRUGS (19)
  1. BYETTA [Suspect]
     Indication: TYPE 2 DIABETES MELLITUS
     Dosage: 5 ug, bid
     Route: 058
     Dates: start: 20120415, end: 20120509
  2. BYETTA [Suspect]
     Dosage: 10 ug, bid
     Route: 058
     Dates: start: 20120510, end: 20120723
  3. ALDACTONE                          /00006201/ [Concomitant]
     Indication: OEDEMA
     Dosage: 25 mg, qd
     Route: 048
     Dates: end: 20120801
  4. NU-LOTAN [Concomitant]
     Indication: HYPERTENSION
     Dosage: 50 mg, qd
     Route: 048
     Dates: end: 20120801
  5. AMLODIN [Concomitant]
     Indication: HYPERTENSION
     Dosage: 5 mg, qd
     Route: 048
     Dates: end: 20120605
  6. AMLODIN [Concomitant]
     Dosage: 2.5 mg, qd
     Route: 048
     Dates: start: 20120606, end: 20120801
  7. METFORMIN HYDROCHLORIDE [Concomitant]
     Indication: TYPE 2 DIABETES MELLITUS
     Dosage: 1250 mg, UNK
     Route: 048
     Dates: end: 20120605
  8. METFORMIN HYDROCHLORIDE [Concomitant]
     Dosage: 250 mg, tid
     Route: 048
     Dates: start: 20120606
  9. METFORMIN HYDROCHLORIDE [Concomitant]
     Dosage: UNK
     Dates: start: 20120704
  10. MAINTATE [Concomitant]
     Indication: HYPERTENSION
     Dosage: 2.5 mg, UNK
     Route: 048
     Dates: end: 20120801
  11. PARIET [Concomitant]
     Indication: DUODENAL ULCER
     Dosage: 10 mg, UNK
     Route: 048
  12. MEVALOTIN [Concomitant]
     Indication: DYSLIPIDAEMIA
     Dosage: 10 mg, UNK
     Route: 048
  13. ZYLORIC [Concomitant]
     Indication: HYPERURICAEMIA
     Dosage: 100 mg, qd
     Route: 048
     Dates: end: 20120801
  14. ACTOS [Concomitant]
     Indication: TYPE 2 DIABETES MELLITUS
     Dosage: 15 mg, UNK
     Route: 048
     Dates: end: 20120703
  15. ACTOS [Concomitant]
     Dosage: 7.5 mg, UNK
     Route: 048
     Dates: start: 20120704
  16. AMARYL [Concomitant]
     Indication: TYPE 2 DIABETES MELLITUS
     Dosage: 0.5 mg, qd
     Route: 048
     Dates: end: 20120605
  17. AMARYL [Concomitant]
     Dosage: 0.25 mg, qd
     Route: 048
     Dates: start: 20120606
  18. FERROMIA                           /00023520/ [Concomitant]
     Indication: IRON DEFICIENCY ANAEMIA
     Dosage: 50 mg, qd
     Route: 048
     Dates: end: 20120801
  19. GLUCOBAY [Concomitant]
     Indication: TYPE 2 DIABETES MELLITUS
     Dosage: 100 mg, tid
     Route: 048

REACTIONS (3)
  - Circulatory collapse [Recovered/Resolved]
  - Renal failure acute [Recovered/Resolved]
  - Nausea [Unknown]
